FAERS Safety Report 21651132 (Version 1)
Quarter: 2022Q4

REPORT INFORMATION
  Report Type: Spontaneous
  Country: US (occurrence: None)
  Receive Date: 20221123
  Receipt Date: 20221123
  Transmission Date: 20230113
  Serious: No
  Sender: FDA-Public Use
  Company Number: None

PATIENT
  Age: 66 Year
  Sex: Male
  Weight: 110.68 kg

DRUGS (1)
  1. SKYRIZI [Suspect]
     Active Substance: RISANKIZUMAB-RZAA
     Indication: Psoriasis
     Dosage: ?INJECT 150MG SUBCUTANEOUSLY EVERY 12 WEEKS AS DIRECTED INJECT
     Route: 058
     Dates: start: 202105

REACTIONS (3)
  - Hepatic failure [None]
  - Cardiac failure [None]
  - Cardiac disorder [None]
